FAERS Safety Report 8598282-8 (Version None)
Quarter: 2012Q3

REPORT INFORMATION
  Report Type: 
  Country: None (occurrence: None)
  Receive Date: 20120816
  Receipt Date: 20120809
  Transmission Date: 20120928
  Serious: Yes (Hospitalization)
  Sender: FDA-Public Use
  Company Number: PHHY2012CA022359

PATIENT
  Sex: Female

DRUGS (1)
  1. GILENYA [Suspect]
     Indication: RELAPSING-REMITTING MULTIPLE SCLEROSIS
     Dosage: 0.5 MG, QD
     Route: 048
     Dates: start: 20120309

REACTIONS (11)
  - ROAD TRAFFIC ACCIDENT [None]
  - HYPOAESTHESIA [None]
  - FATIGUE [None]
  - OROPHARYNGEAL PAIN [None]
  - STRESS [None]
  - TREMOR [None]
  - INSOMNIA [None]
  - RASH [None]
  - HEADACHE [None]
  - ANXIETY [None]
  - NECK PAIN [None]
